FAERS Safety Report 6492652-X (Version None)
Quarter: 2009Q4

REPORT INFORMATION
  Report Type: 
  Country: None (occurrence: None)
  Receive Date: 20091209
  Receipt Date: 20091201
  Transmission Date: 20100525
  Serious: Yes (Hospitalization)
  Sender: FDA-Public Use
  Company Number: 09-001053

PATIENT
  Age: 16 Year
  Sex: Male
  Weight: 64.9 kg

DRUGS (1)
  1. DORYX [Suspect]
     Indication: ACNE
     Dosage: 75 MG, QD, ORAL
     Route: 048
     Dates: start: 20081001, end: 20090201

REACTIONS (3)
  - HEPATIC FIBROSIS [None]
  - HEPATITIS [None]
  - LABORATORY TEST ABNORMAL [None]
